FAERS Safety Report 12856851 (Version 1)
Quarter: 2016Q4

REPORT INFORMATION
  Report Type: Spontaneous
  Country: US (occurrence: US)
  Receive Date: 20161018
  Receipt Date: 20161018
  Transmission Date: 20170207
  Serious: Yes (Other)
  Sender: FDA-Public Use
  Company Number: None

PATIENT
  Age: 33 Year
  Sex: Female
  Weight: 70.2 kg

DRUGS (1)
  1. EFFEXOR [Suspect]
     Active Substance: VENLAFAXINE HYDROCHLORIDE

REACTIONS (7)
  - Drug dependence [None]
  - Tobacco user [None]
  - Alcoholism [None]
  - Flat affect [None]
  - Nicotine dependence [None]
  - Alcohol use [None]
  - Judgement impaired [None]

NARRATIVE: CASE EVENT DATE: 20161016
